FAERS Safety Report 17325892 (Version 4)
Quarter: 2020Q2

REPORT INFORMATION
  Report Type: Spontaneous
  Country: US (occurrence: US)
  Receive Date: 20200127
  Receipt Date: 20200625
  Transmission Date: 20200713
  Serious: No
  Sender: FDA-Public Use
  Company Number: US-PFIZER INC-2020035183

PATIENT
  Age: 1 Year
  Sex: Male

DRUGS (2)
  1. CLINDAMYCIN PALMITATE HCL [Suspect]
     Active Substance: CLINDAMYCIN PALMITATE HYDROCHLORIDE
     Indication: ABSCESS
     Dosage: UNK
     Route: 048
     Dates: start: 20190106, end: 20191017
  2. CLINDAMYCIN PALMITATE HCL [Suspect]
     Active Substance: CLINDAMYCIN PALMITATE HYDROCHLORIDE
     Indication: INFECTION

REACTIONS (1)
  - Drug resistance [Unknown]
